FAERS Safety Report 7880779-7 (Version None)
Quarter: 2011Q4

REPORT INFORMATION
  Report Type: 
  Country: None (occurrence: None)
  Receive Date: 20111101
  Receipt Date: 20111028
  Transmission Date: 20120403
  Serious: Yes (Death, Other)
  Sender: FDA-Public Use
  Company Number: PHHY2011DE95348

PATIENT
  Sex: Female
  Weight: 92 kg

DRUGS (1)
  1. TASIGNA [Suspect]
     Dosage: UNK UKN, UNK

REACTIONS (2)
  - GLIOBLASTOMA [None]
  - THROMBOSIS [None]
